FAERS Safety Report 11024262 (Version 1)
Quarter: 2015Q2

REPORT INFORMATION
  Report Type: Spontaneous
  Country: IN (occurrence: IN)
  Receive Date: 20150414
  Receipt Date: 20150414
  Transmission Date: 20150821
  Serious: Yes (Other)
  Sender: FDA-Public Use
  Company Number: IN-AUROBINDO-AUR-APL-2015-03094

PATIENT
  Age: 22 Year
  Sex: Female

DRUGS (3)
  1. EFAVIRENZ TABLETS 600 MG [Suspect]
     Active Substance: EFAVIRENZ
     Indication: HIV INFECTION
     Dosage: 600 MG, ONCE A DAY
     Route: 048
     Dates: start: 20150305, end: 20150312
  2. TENOFOVIR DISOPROXIL FUMARATE TABLETS 300MG [Suspect]
     Active Substance: TENOFOVIR DISOPROXIL FUMARATE
     Indication: HIV INFECTION
     Dosage: 300 MG, ONCE A DAY
     Route: 048
     Dates: start: 20150305, end: 20150312
  3. LAMIVUDINE TABLETS 300 MG [Suspect]
     Active Substance: LAMIVUDINE
     Indication: HIV INFECTION
     Dosage: 300 MG, ONCE A DAY
     Route: 048
     Dates: start: 20150305, end: 20150312

REACTIONS (1)
  - Rash maculo-papular [Recovered/Resolved]

NARRATIVE: CASE EVENT DATE: 20150312
